FAERS Safety Report 7793183-7 (Version None)
Quarter: 2011Q4

REPORT INFORMATION
  Report Type: 
  Country: None (occurrence: None)
  Receive Date: 20111003
  Receipt Date: 20110928
  Transmission Date: 20120403
  Serious: Yes (Death)
  Sender: FDA-Public Use
  Company Number: US-AMGEN-USASP2011050388

PATIENT
  Age: 62 Year
  Sex: Female

DRUGS (1)
  1. NPLATE [Suspect]
     Indication: THROMBOCYTOPENIA
     Dosage: 2 MUG/KG, UNK
     Dates: start: 20100914, end: 20100929

REACTIONS (1)
  - DEATH [None]
